FAERS Safety Report 15815550 (Version 2)
Quarter: 2019Q1

REPORT INFORMATION
  Report Type: Spontaneous
  Country: CH (occurrence: CH)
  Receive Date: 20190112
  Receipt Date: 20190118
  Transmission Date: 20190417
  Serious: Yes (Other)
  Sender: FDA-Public Use
  Company Number: PHHY2019CH000656

PATIENT
  Sex: Male

DRUGS (2)
  1. LISITRIL COMP [Suspect]
     Active Substance: HYDROCHLOROTHIAZIDE\LISINOPRIL
     Indication: HYPERTENSION
     Dosage: UNK, QD
     Route: 048
     Dates: start: 2017
  2. OLFEN [Concomitant]
     Active Substance: DICLOFENAC SODIUM
     Indication: SPONDYLITIS
     Route: 065

REACTIONS (1)
  - Basal cell carcinoma [Recovered/Resolved]

NARRATIVE: CASE EVENT DATE: 2018
